FAERS Safety Report 6844228-X (Version None)
Quarter: 2010Q3

REPORT INFORMATION
  Report Type: 
  Country: None (occurrence: None)
  Receive Date: 20100715
  Receipt Date: 20100708
  Transmission Date: 20110219
  Serious: Yes (Hospitalization)
  Sender: FDA-Public Use
  Company Number: B0665418A

PATIENT
  Sex: Female

DRUGS (5)
  1. SEREUPIN [Suspect]
     Indication: DEPRESSION
     Route: 048
     Dates: start: 20070628, end: 20100628
  2. ACESISTEM [Suspect]
     Indication: HYPERTENSION
     Route: 048
     Dates: start: 20070628, end: 20100628
  3. LORAZEPAM [Suspect]
     Indication: DEPRESSION
     Dosage: 2.5MG PER DAY
     Route: 048
     Dates: start: 20070628, end: 20100628
  4. VALPRESSION [Concomitant]
     Dosage: 80MG PER DAY
     Route: 048
  5. SERENASE [Concomitant]

REACTIONS (2)
  - EPILEPSY [None]
  - HYPONATRAEMIA [None]
